FAERS Safety Report 7135647-5 (Version None)
Quarter: 2010Q4

REPORT INFORMATION
  Report Type: 
  Country: None (occurrence: None)
  Receive Date: 20101203
  Receipt Date: 20101126
  Transmission Date: 20110411
  Serious: Yes (Other)
  Sender: FDA-Public Use
  Company Number: ES-ROCHE-706918

PATIENT
  Age: 39 Year
  Sex: Female

DRUGS (7)
  1. ROACTEMRA [Suspect]
     Indication: RHEUMATOID ARTHRITIS
     Dosage: FORM: INFUSION; FIRST INFUSION
     Route: 042
     Dates: start: 20100101
  2. ROACTEMRA [Suspect]
     Dosage: SECOND INFUSION
     Route: 042
     Dates: start: 20100201
  3. ROACTEMRA [Suspect]
     Dosage: THIRD INFUSION
     Route: 042
     Dates: start: 20100301
  4. ROACTEMRA [Suspect]
     Dosage: FOURTH INFUSION
     Route: 042
     Dates: start: 20100419
  5. ROACTEMRA [Suspect]
     Dosage: FIFTH INFUSION
     Route: 042
     Dates: start: 20100520
  6. ROACTEMRA [Suspect]
     Dosage: SIXTH INFUSION
     Route: 042
     Dates: start: 20100629, end: 20100629
  7. POLARAMINE [Concomitant]

REACTIONS (12)
  - ASTHENIA [None]
  - ECZEMA EYELIDS [None]
  - EYE PRURITUS [None]
  - EYE SWELLING [None]
  - METRORRHAGIA [None]
  - MUCOSAL DRYNESS [None]
  - NASAL CONGESTION [None]
  - RASH [None]
  - RHINORRHOEA [None]
  - SKIN EXFOLIATION [None]
  - URTICARIA [None]
  - VOMITING [None]
